FAERS Safety Report 6992633-3 (Version None)
Quarter: 2010Q3

REPORT INFORMATION
  Report Type: 
  Country: None (occurrence: None)
  Receive Date: 20100917
  Receipt Date: 20100912
  Transmission Date: 20110219
  Serious: Yes (Other)
  Sender: FDA-Public Use
  Company Number: US-SANOFI-AVENTIS-2010SA054962

PATIENT
  Age: 77 Year
  Sex: Female

DRUGS (1)
  1. GLIMEPIRIDE [Suspect]
     Dates: end: 20100601

REACTIONS (1)
  - CEREBROVASCULAR ACCIDENT [None]
